FAERS Safety Report 8321297-1 (Version None)
Quarter: 2012Q2

REPORT INFORMATION
  Report Type: 
  Country: None (occurrence: None)
  Receive Date: 20120430
  Receipt Date: 20120423
  Transmission Date: 20120825
  Serious: Yes (Other)
  Sender: FDA-Public Use
  Company Number: FR-SANOFI-AVENTIS-2011SA015999

PATIENT
  Age: 87 Year
  Sex: Male

DRUGS (6)
  1. MULTAQ [Suspect]
     Route: 048
     Dates: start: 20110311
  2. ASPIRIN [Concomitant]
     Route: 048
     Dates: end: 20110301
  3. ASPIRIN [Concomitant]
     Route: 048
     Dates: start: 20110311
  4. BISOPROLOL FUMARATE [Concomitant]
     Route: 048
     Dates: start: 20110311
  5. SOTALOL HCL [Concomitant]
     Route: 048
  6. IRBESARTAN [Concomitant]
     Dosage: DOSE:1 UNIT(S)
     Route: 048

REACTIONS (6)
  - ATRIAL FIBRILLATION [None]
  - ABDOMINAL PAIN [None]
  - DIARRHOEA [None]
  - BRADYCARDIA [None]
  - ASTHENIA [None]
  - EXTRASYSTOLES [None]
